FAERS Safety Report 7190216-6 (Version None)
Quarter: 2010Q4

REPORT INFORMATION
  Report Type: 
  Country: None (occurrence: None)
  Receive Date: 20101223
  Receipt Date: 20101217
  Transmission Date: 20110411
  Serious: Yes (Other)
  Sender: FDA-Public Use
  Company Number: US-PFIZER INC-2010107780

PATIENT
  Sex: Female

DRUGS (3)
  1. SUTENT [Suspect]
     Indication: METASTATIC RENAL CELL CARCINOMA
     Dosage: 50 MG, 1X/DAY, 4 WEEKS ON + 2 OFF
     Route: 048
     Dates: start: 20100820, end: 20100824
  2. SUTENT [Suspect]
     Dosage: 25 MG, 1X/DAY, X 28DAYS EVERY 42DAYS
     Dates: start: 20100831
  3. SUTENT [Suspect]
     Dosage: 25 MG, 1X/DAY X 14 DAYS EVERY 21 DAYS
     Dates: start: 20101012

REACTIONS (2)
  - HYPERTENSION [None]
  - ORAL FUNGAL INFECTION [None]
